FAERS Safety Report 16109261 (Version 1)
Quarter: 2019Q1

REPORT INFORMATION
  Report Type: Spontaneous
  Country: US (occurrence: US)
  Receive Date: 20190324
  Receipt Date: 20190324
  Transmission Date: 20190418
  Serious: No
  Sender: FDA-Public Use
  Company Number: US-JNJFOC-20190302312

PATIENT
  Sex: Female
  Weight: 58.97 kg

DRUGS (1)
  1. TOPAMAX [Suspect]
     Active Substance: TOPIRAMATE
     Indication: PRODUCT USED FOR UNKNOWN INDICATION
     Dosage: APPROXIMATELY 16 YEARS AGO
     Route: 048

REACTIONS (3)
  - Amnesia [Not Recovered/Not Resolved]
  - Language disorder [Not Recovered/Not Resolved]
  - Adverse event [Unknown]
